FAERS Safety Report 20819814 (Version 3)
Quarter: 2022Q2

REPORT INFORMATION
  Report Type: Spontaneous
  Country: US (occurrence: US)
  Receive Date: 20220512
  Receipt Date: 20220616
  Transmission Date: 20220721
  Serious: Yes (Other)
  Sender: FDA-Public Use
  Company Number: US-PFIZER INC-202200650309

PATIENT
  Age: 77 Year
  Sex: Female
  Weight: 44 kg

DRUGS (5)
  1. IBRANCE [Suspect]
     Active Substance: PALBOCICLIB
     Indication: Breast cancer recurrent
     Dosage: 125 MG, CYCLIC (7 TABLETS WEEKLY; 3 WEEKS THEN OFF 7 DAYS)
     Dates: start: 20220419
  2. IBRANCE [Suspect]
     Active Substance: PALBOCICLIB
     Dosage: UNK
  3. IBRANCE [Suspect]
     Active Substance: PALBOCICLIB
     Dosage: 100 MG
     Dates: start: 20220601
  4. FASLODEX [Concomitant]
     Active Substance: FULVESTRANT
     Indication: Breast cancer recurrent
     Dosage: UNK, MONTHLY
     Dates: start: 20220311, end: 20220325
  5. FASLODEX [Concomitant]
     Active Substance: FULVESTRANT
     Dosage: UNK
     Dates: start: 20220422

REACTIONS (15)
  - Haemorrhage subcutaneous [Not Recovered/Not Resolved]
  - Thrombosis [Unknown]
  - Skin haemorrhage [Not Recovered/Not Resolved]
  - Pain in extremity [Recovered/Resolved]
  - Skin ulcer [Not Recovered/Not Resolved]
  - Skin exfoliation [Not Recovered/Not Resolved]
  - Cyanosis [Not Recovered/Not Resolved]
  - Skin wrinkling [Unknown]
  - Erythema [Recovered/Resolved]
  - Alopecia [Recovered/Resolved]
  - Dysphonia [Unknown]
  - Lip pain [Recovered/Resolved]
  - Nail disorder [Not Recovered/Not Resolved]
  - Feeling abnormal [Unknown]
  - Rhinorrhoea [Unknown]

NARRATIVE: CASE EVENT DATE: 20220401
